FAERS Safety Report 6958008-8 (Version None)
Quarter: 2010Q3

REPORT INFORMATION
  Report Type: 
  Country: None (occurrence: None)
  Receive Date: 20100817
  Receipt Date: 20071120
  Transmission Date: 20110219
  Serious: No
  Sender: FDA-Public Use
  Company Number: 20097384

PATIENT
  Sex: Male

DRUGS (2)
  1. LIORESAL [Suspect]
     Indication: MUSCLE SPASTICITY
     Dosage: UNK MCG: DAILY, INTRATHECAL
     Route: 037
  2. IMODIUM A-D [Concomitant]

REACTIONS (1)
  - DIARRHOEA [None]
